FAERS Safety Report 8406050-2 (Version None)
Quarter: 2012Q2

REPORT INFORMATION
  Report Type: 
  Country: None (occurrence: None)
  Receive Date: 20120604
  Receipt Date: 20120525
  Transmission Date: 20120825
  Serious: Yes (Hospitalization)
  Sender: FDA-Public Use
  Company Number: US-BAYER-2011-075133

PATIENT
  Age: 28 Year
  Sex: Female

DRUGS (2)
  1. NSAID'S [Concomitant]
  2. YAZ [Suspect]
     Dosage: UNK
     Dates: start: 20040101, end: 20090101

REACTIONS (3)
  - INJURY [None]
  - PAIN [None]
  - GALLBLADDER INJURY [None]
